FAERS Safety Report 23416471 (Version 1)
Quarter: 2024Q1

REPORT INFORMATION
  Report Type: Spontaneous
  Country: US (occurrence: None)
  Receive Date: 20240117
  Receipt Date: 20240117
  Transmission Date: 20240410
  Serious: Yes (Hospitalization)
  Sender: FDA-Public Use
  Company Number: None

PATIENT
  Sex: Male

DRUGS (26)
  1. PROCRIT [Suspect]
     Active Substance: ERYTHROPOIETIN
     Indication: Product used for unknown indication
     Dosage: 10000 UNIT/ML  INJECTION??INJECT 1 ML SUBCUTANEOUSLY EVERY MONDAY AND THURSDAY? ?
     Dates: start: 20230118
  2. ASPIRIN LOW CHW [Concomitant]
  3. ATORVASTATIN [Concomitant]
     Active Substance: ATORVASTATIN
  4. CHOLESTYRAM POW [Concomitant]
  5. CLINDAMYCIN [Concomitant]
  6. DOXAZOSIN [Concomitant]
     Active Substance: DOXAZOSIN MESYLATE
  7. ENVARSUS XR [Concomitant]
     Active Substance: TACROLIMUS
  8. ACETAMINOPHEN\HYDROCODONE [Concomitant]
     Active Substance: ACETAMINOPHEN\HYDROCODONE
  9. HYDROXYZ HCL TAB [Concomitant]
  10. LANTUS INJ [Concomitant]
  11. METOPROL SUC TAB [Concomitant]
  12. MYCOPHENOLATE MOFETIL [Concomitant]
     Active Substance: MYCOPHENOLATE MOFETIL
  13. MYCOPHENOLIC ACID [Concomitant]
     Active Substance: MYCOPHENOLIC ACID
  14. NOVAREL INJ [Concomitant]
  15. NOVOLOG INJ [Concomitant]
  16. OCTREOTIDE [Concomitant]
     Active Substance: OCTREOTIDE\OCTREOTIDE ACETATE
  17. OXYCODONE TAB [Concomitant]
  18. PREDNISONE [Concomitant]
     Active Substance: PREDNISONE
  19. SEVELAMER TAB [Concomitant]
  20. SIROLIMUS [Concomitant]
     Active Substance: SIROLIMUS
  21. TACROLIMUS [Concomitant]
     Active Substance: TACROLIMUS
  22. TESTOSTERONE GEL PUMP [Concomitant]
  23. URSODIOL CAP [Concomitant]
  24. VALCYTE TAB [Concomitant]
  25. VELTASSA POW [Concomitant]
  26. DDAVP SPR  0.01% [Concomitant]

REACTIONS (1)
  - Hospitalisation [None]
